FAERS Safety Report 8461549 (Version 3)
Quarter: 2013Q2

REPORT INFORMATION
  Report Type: Report from Study
  Country: CA (occurrence: CA)
  Receive Date: 20120313
  Receipt Date: 20130401
  Transmission Date: 20140414
  Serious: Yes (Life-Threatening, Hospitalization, Disabling)
  Sender: FDA-Public Use
  Company Number: CA-ROCHE-1046302

PATIENT
  Age: 50 Year
  Sex: Female
  Weight: 78.5 kg

DRUGS (5)
  1. PEG-INTERFERON ALFA 2A [Suspect]
     Indication: CHRONIC HEPATITIS C
     Route: 058
     Dates: start: 20111121, end: 20120224
  2. RIBAVIRIN [Suspect]
     Indication: CHRONIC HEPATITIS C
     Route: 048
     Dates: start: 20111121, end: 20120224
  3. RIBAVIRIN [Suspect]
     Dosage: DISCONTINUED
     Route: 048
     Dates: end: 20120224
  4. BI 201335 [Suspect]
     Indication: CHRONIC HEPATITIS C
     Route: 048
     Dates: start: 20111121, end: 20120213
  5. BI 201335 [Suspect]
     Route: 048
     Dates: end: 20120224

REACTIONS (3)
  - Sepsis [Not Recovered/Not Resolved]
  - Hepatic failure [Not Recovered/Not Resolved]
  - Renal failure [Not Recovered/Not Resolved]
